FAERS Safety Report 7543841-4 (Version None)
Quarter: 2011Q2

REPORT INFORMATION
  Report Type: 
  Country: None (occurrence: None)
  Receive Date: 20110613
  Receipt Date: 20110530
  Transmission Date: 20111010
  Serious: Yes (Death, Other)
  Sender: FDA-Public Use
  Company Number: IT-CELGENEUS-083-50794-11051621

PATIENT

DRUGS (1)
  1. VIDAZA [Suspect]
     Dosage: 143 MILLIGRAM
     Route: 050
     Dates: end: 20110103

REACTIONS (3)
  - DISEASE PROGRESSION [None]
  - DEATH [None]
  - ACUTE LEUKAEMIA [None]
